FAERS Safety Report 8312233 (Version 6)
Quarter: 2013Q3

REPORT INFORMATION
  Report Type: Spontaneous
  Country: US (occurrence: US)
  Receive Date: 20111227
  Receipt Date: 20130812
  Transmission Date: 20140515
  Serious: Yes (Other)
  Sender: FDA-Public Use
  Company Number: US-ROCHE-802635

PATIENT
  Age: 24 Year
  Sex: Female
  Weight: 59.02 kg

DRUGS (3)
  1. ACCUTANE [Suspect]
     Indication: ACNE CYSTIC
     Route: 065
  2. ACCUTANE [Suspect]
     Route: 065
  3. ACCUTANE [Suspect]
     Route: 065
     Dates: start: 20010322, end: 20010328

REACTIONS (13)
  - Colitis ulcerative [Unknown]
  - Inflammatory bowel disease [Unknown]
  - Gastrooesophageal reflux disease [Unknown]
  - Depression [Unknown]
  - Fibrocystic breast disease [Unknown]
  - Ovarian cyst [Unknown]
  - Rash [Unknown]
  - Alopecia [Unknown]
  - Irritable bowel syndrome [Unknown]
  - Cheilitis [Unknown]
  - Dry skin [Unknown]
  - Myalgia [Unknown]
  - Mood altered [Unknown]
